FAERS Safety Report 25918867 (Version 1)
Quarter: 2025Q4

REPORT INFORMATION
  Report Type: Spontaneous
  Country: TR (occurrence: TR)
  Receive Date: 20251014
  Receipt Date: 20251014
  Transmission Date: 20260117
  Serious: Yes (Other)
  Sender: REGENERON
  Company Number: TR-BAYER-2025A089828

PATIENT
  Age: 85 Year
  Sex: Male

DRUGS (1)
  1. EYLEA [Suspect]
     Active Substance: AFLIBERCEPT
     Indication: Age-related macular degeneration
     Dosage: 2 MG, 40MG/ML
     Route: 031
     Dates: start: 20220818

REACTIONS (5)
  - Macular oedema [Not Recovered/Not Resolved]
  - Eye inflammation [Not Recovered/Not Resolved]
  - Vitreous haze [Unknown]
  - Visual impairment [Unknown]
  - Eye pain [Unknown]
